FAERS Safety Report 11152288 (Version 1)
Quarter: 2015Q2

REPORT INFORMATION
  Report Type: Spontaneous
  Country: US (occurrence: None)
  Receive Date: 20150529
  Receipt Date: 20150529
  Transmission Date: 20150821
  Serious: No
  Sender: FDA-Public Use
  Company Number: None

PATIENT
  Age: 3 Year
  Sex: Male
  Weight: 18 kg

DRUGS (3)
  1. LANTUS [Suspect]
     Active Substance: INSULIN GLARGINE
     Indication: TYPE 1 DIABETES MELLITUS
     Dosage: 4 UNITS/DAY ONCE DAILY GIVEN INTO/UNDER THE SKIN
     Route: 058
     Dates: start: 20150515, end: 20150520
  2. FLINTSTONE VITAMIN [Concomitant]
  3. NATURE MADE VITTAMIN C FOR KIDS [Concomitant]

REACTIONS (3)
  - Drug ineffective [None]
  - Blood glucose increased [None]
  - Product quality issue [None]

NARRATIVE: CASE EVENT DATE: 20150515
